FAERS Safety Report 9495329 (Version 3)
Quarter: 2014Q4

REPORT INFORMATION
  Report Type: Spontaneous
  Country: US (occurrence: US)
  Receive Date: 20130903
  Receipt Date: 20141030
  Transmission Date: 20150529
  Serious: Yes (Hospitalization, Other)
  Sender: FDA-Public Use
  Company Number: US-GLAXOSMITHKLINE-A1039140A

PATIENT
  Age: 45 Year
  Sex: Female

DRUGS (8)
  1. ADVAIR HFA [Suspect]
     Active Substance: FLUTICASONE PROPIONATE\SALMETEROL XINAFOATE
     Indication: ASTHMA
     Dosage: 1 PUFF(S), BID
     Route: 055
     Dates: start: 20131026
  2. TYLENOL [Concomitant]
     Active Substance: ACETAMINOPHEN
  3. MUCINEX [Concomitant]
     Active Substance: GUAIFENESIN
  4. ADVAIR HFA [Suspect]
     Active Substance: FLUTICASONE PROPIONATE\SALMETEROL XINAFOATE
     Indication: CHRONIC OBSTRUCTIVE PULMONARY DISEASE
  5. VENTOLIN [Suspect]
     Active Substance: ALBUTEROL SULFATE
     Indication: ASTHMA
     Route: 055
     Dates: start: 2001
  6. SINGULAIR [Concomitant]
     Active Substance: MONTELUKAST SODIUM
  7. VENTOLIN [Suspect]
     Active Substance: ALBUTEROL SULFATE
     Indication: CHRONIC OBSTRUCTIVE PULMONARY DISEASE
  8. PREDNISONE. [Concomitant]
     Active Substance: PREDNISONE

REACTIONS (9)
  - Drug ineffective [Unknown]
  - Incorrect dosage administered [Not Recovered/Not Resolved]
  - Malaise [Not Recovered/Not Resolved]
  - Off label use [Unknown]
  - Lung disorder [Recovered/Resolved]
  - Chest discomfort [Not Recovered/Not Resolved]
  - Oxygen saturation decreased [Recovering/Resolving]
  - Dyspnoea [Not Recovered/Not Resolved]
  - Pneumonia [Recovered/Resolved]

NARRATIVE: CASE EVENT DATE: 20130823
